FAERS Safety Report 4524882-8 (Version None)
Quarter: 2004Q4

REPORT INFORMATION
  Report Type: 
  Country: None (occurrence: None)
  Receive Date: 20041210
  Receipt Date: 20040916
  Transmission Date: 20050328
  Serious: Yes (Life-Threatening)
  Sender: FDA-Public Use
  Company Number: M2004-1806

PATIENT
  Age: 22 Year
  Sex: Female

DRUGS (2)
  1. DIAZEPAM [Suspect]
     Dosage: OVERDOSE, ORAL
     Route: 048
  2. FLUVOXAMINE MALEATE [Suspect]
     Dosage: OVERDOSE, ORAL
     Route: 048

REACTIONS (6)
  - ABDOMINAL PAIN [None]
  - CARDIO-RESPIRATORY ARREST [None]
  - CONVULSION [None]
  - ELECTROCARDIOGRAM QRS COMPLEX PROLONGED [None]
  - MULTIPLE DRUG OVERDOSE INTENTIONAL [None]
  - VOMITING [None]
